FAERS Safety Report 6128095-8 (Version None)
Quarter: 2009Q1

REPORT INFORMATION
  Report Type: 
  Country: None (occurrence: None)
  Receive Date: 20090320
  Receipt Date: 20090320
  Transmission Date: 20090719
  Serious: No
  Sender: FDA-Public Use
  Company Number: None

PATIENT
  Sex: Female

DRUGS (6)
  1. ACTONEL [Suspect]
     Indication: OSTEOPENIA
     Dosage: 35 MG WEEKLY ORAL
     Route: 048
     Dates: start: 20010701, end: 20010801
  2. FOSAMAX [Suspect]
     Indication: OSTEOPENIA
     Dosage: 70 MG WEEKLY ORAL
     Route: 048
     Dates: start: 20010901, end: 20050401
  3. LAMICTAL [Concomitant]
  4. PATANOL [Concomitant]
  5. NEXIUM [Concomitant]
  6. MULTI-VITAMINS [Concomitant]

REACTIONS (3)
  - BONE DISORDER [None]
  - GINGIVAL EROSION [None]
  - SOFT TISSUE DISORDER [None]
